FAERS Safety Report 25476907 (Version 2)
Quarter: 2025Q3

REPORT INFORMATION
  Report Type: Spontaneous
  Country: EU (occurrence: EU)
  Receive Date: 20250625
  Receipt Date: 20250707
  Transmission Date: 20251021
  Serious: Yes (Hospitalization, Other)
  Sender: AUROBINDO
  Company Number: EU-RDY-ITA/2025/06/008297

PATIENT
  Age: 76 Year
  Sex: Male

DRUGS (5)
  1. ACETAMINOPHEN [Interacting]
     Active Substance: ACETAMINOPHEN
     Indication: Sciatica
     Route: 065
  2. ACETAMINOPHEN [Interacting]
     Active Substance: ACETAMINOPHEN
     Indication: Sciatic nerve injury
  3. IMATINIB [Interacting]
     Active Substance: IMATINIB
     Indication: Chronic myeloid leukaemia
     Route: 065
  4. VITAMIN K [Interacting]
     Active Substance: PHYTONADIONE
     Indication: Anticoagulant therapy
     Route: 065
  5. EDOXABAN [Concomitant]
     Active Substance: EDOXABAN
     Indication: Anticoagulant therapy
     Dosage: 30 MILLIGRAM/DIE
     Route: 065

REACTIONS (4)
  - Haematochezia [Unknown]
  - Drug interaction [Unknown]
  - Abdominal pain [Unknown]
  - Transaminases increased [Unknown]
